FAERS Safety Report 10684351 (Version 4)
Quarter: 2015Q1

REPORT INFORMATION
  Report Type: Spontaneous
  Country: US (occurrence: US)
  Receive Date: 20141231
  Receipt Date: 20150125
  Transmission Date: 20150720
  Serious: Yes (Other)
  Sender: FDA-Public Use
  Company Number: US-GILEAD-2014-0129175

PATIENT
  Age: 12 Year
  Sex: Male

DRUGS (2)
  1. LETAIRIS [Suspect]
     Active Substance: AMBRISENTAN
     Indication: PULMONARY HYPERTENSION
     Dosage: 5 MG, QD
     Route: 065
     Dates: start: 20130909
  2. LETAIRIS [Suspect]
     Active Substance: AMBRISENTAN
     Indication: HEART DISEASE CONGENITAL

REACTIONS (5)
  - Gastrointestinal haemorrhage [Unknown]
  - Pyrexia [Unknown]
  - Anaemia [Unknown]
  - Hypophagia [Unknown]
  - Off label use [Unknown]

NARRATIVE: CASE EVENT DATE: 20130909
